FAERS Safety Report 5207437-1 (Version None)
Quarter: 2007Q1

REPORT INFORMATION
  Report Type: 
  Country: None (occurrence: None)
  Receive Date: 20070112
  Receipt Date: 20070104
  Transmission Date: 20070707
  Serious: Yes (Hospitalization)
  Sender: FDA-Public Use
  Company Number: US-ABBOTT-07P-163-0355348-00

PATIENT
  Sex: Female
  Weight: 100 kg

DRUGS (10)
  1. HUMIRA [Suspect]
     Indication: RHEUMATOID ARTHRITIS
     Route: 058
     Dates: start: 20040601
  2. HUMIRA [Suspect]
     Indication: PSORIATIC ARTHROPATHY
  3. DIOVAN [Concomitant]
     Indication: HYPERTENSION
     Route: 048
  4. CLOPIDOGREL BISULFATE [Concomitant]
     Indication: BLOOD CHOLESTEROL INCREASED
     Route: 048
  5. CRESTOR [Concomitant]
     Indication: BLOOD CHOLESTEROL INCREASED
     Route: 048
  6. ACTOS [Concomitant]
     Indication: DIABETES MELLITUS
     Route: 048
  7. METHOTREXATE [Concomitant]
     Indication: RHEUMATOID ARTHRITIS
     Route: 058
  8. METHOTREXATE [Concomitant]
     Indication: PSORIATIC ARTHROPATHY
  9. INSULIN LISPRO [Concomitant]
     Indication: DIABETES MELLITUS
     Route: 058
  10. BYETTA DB [Concomitant]
     Indication: DIABETES MELLITUS
     Route: 058

REACTIONS (2)
  - FALL [None]
  - PELVIC FRACTURE [None]
